FAERS Safety Report 5718557-7 (Version None)
Quarter: 2008Q2

REPORT INFORMATION
  Report Type: 
  Country: None (occurrence: None)
  Receive Date: 20080425
  Receipt Date: 20080417
  Transmission Date: 20081010
  Serious: Yes (Hospitalization)
  Sender: FDA-Public Use
  Company Number: JP-PFIZER INC-2008015953

PATIENT
  Sex: Male
  Weight: 63.8 kg

DRUGS (11)
  1. AZULFIDINE EN-TABS [Suspect]
     Indication: ARTHRALGIA
     Dosage: DAILY DOSE:1GRAM
     Route: 048
     Dates: start: 20030902, end: 20050323
  2. AZULFIDINE EN-TABS [Suspect]
     Indication: RHEUMATOID ARTHRITIS
  3. SODIUM AUROTHIOMALATE [Suspect]
     Indication: RHEUMATOID ARTHRITIS
  4. OSTELUC [Concomitant]
     Route: 048
     Dates: start: 20030902, end: 20050323
  5. FAMOTIDINE [Concomitant]
     Route: 048
     Dates: start: 20030902
  6. PANALDINE [Concomitant]
     Route: 048
     Dates: end: 20050323
  7. SERMION [Concomitant]
     Route: 048
     Dates: end: 20050323
  8. CEROCRAL [Concomitant]
     Route: 048
     Dates: end: 20050323
  9. IMIDAPRIL [Concomitant]
     Route: 048
     Dates: end: 20050323
  10. NIVADIL [Concomitant]
     Route: 048
  11. CARDENALIN [Concomitant]
     Route: 048
     Dates: start: 20050323

REACTIONS (4)
  - ACUTE LYMPHOCYTIC LEUKAEMIA [None]
  - HEPATIC FUNCTION ABNORMAL [None]
  - PANCYTOPENIA [None]
  - PYREXIA [None]
